FAERS Safety Report 14026115 (Version 5)
Quarter: 2018Q3

REPORT INFORMATION
  Report Type: Report from Study
  Country: BR (occurrence: BR)
  Receive Date: 20170929
  Receipt Date: 20180711
  Transmission Date: 20181010
  Serious: Yes (Other)
  Sender: FDA-Public Use
  Company Number: PHHY2015BR135851

PATIENT
  Age: 32 Year
  Sex: Female
  Weight: 68 kg

DRUGS (15)
  1. GILENYA [Suspect]
     Active Substance: FINGOLIMOD HYDROCHLORIDE
     Dosage: 0.5 MG, QD
     Route: 048
     Dates: start: 20151125, end: 201707
  2. GILENYA [Suspect]
     Active Substance: FINGOLIMOD HYDROCHLORIDE
     Dosage: 0.5 MG, QD
     Route: 048
     Dates: start: 2017
  3. FLUOXETINE [Concomitant]
     Active Substance: FLUOXETINE HYDROCHLORIDE
     Indication: DEPRESSION
  4. VITAMIN B [Concomitant]
     Active Substance: VITAMIN B
     Indication: PRODUCT USED FOR UNKNOWN INDICATION
     Dosage: 5 DRP, QD
     Route: 048
  5. SALINE [Suspect]
     Active Substance: SODIUM CHLORIDE
     Indication: OCULAR HYPERAEMIA
     Dosage: UNK
     Route: 047
  6. CERAZETTE [Concomitant]
     Indication: CONTRACEPTION
     Dosage: 1 DF, QD (STARTED 6 YEARS AGO)
     Route: 048
  7. TAMLUSIN [Concomitant]
     Indication: PRODUCT USED FOR UNKNOWN INDICATION
     Dosage: 1 DF, QD
     Route: 065
     Dates: start: 201801
  8. FLUOXETINE [Concomitant]
     Active Substance: FLUOXETINE HYDROCHLORIDE
     Indication: ANXIETY
     Dosage: 40 MG, QD (EVERY AFTERNOON)
     Route: 048
     Dates: start: 2014
  9. TYLENOL [Concomitant]
     Active Substance: ACETAMINOPHEN
     Indication: PRODUCT USED FOR UNKNOWN INDICATION
     Dosage: UNK
     Route: 065
  10. OMEPRAZOLE. [Concomitant]
     Active Substance: OMEPRAZOLE
     Indication: PROPHYLAXIS
     Dosage: 1 DF, QD (STARTED MANY YEARS AGO)
     Route: 065
  11. SERTRALINE [Concomitant]
     Active Substance: SERTRALINE HYDROCHLORIDE
     Indication: DEPRESSION
     Dosage: UNK, BID
     Route: 048
  12. VITAMIN D [Concomitant]
     Active Substance: CHOLECALCIFEROL
     Indication: PRODUCT USED FOR UNKNOWN INDICATION
     Dosage: 1000 UL, QD (5 DROP IN THE MORNING)
     Route: 065
  13. VITAMIN D [Concomitant]
     Active Substance: CHOLECALCIFEROL
     Dosage: 5 DRP, QD
     Route: 048
  14. GILENYA [Suspect]
     Active Substance: FINGOLIMOD HYDROCHLORIDE
     Indication: MULTIPLE SCLEROSIS
     Dosage: 0.5 MG, QD
     Route: 048
     Dates: start: 20130316
  15. GILENYA [Suspect]
     Active Substance: FINGOLIMOD HYDROCHLORIDE
     Dosage: 0.5 MG, QD
     Route: 048
     Dates: start: 201306, end: 201507

REACTIONS (81)
  - Foot fracture [Recovered/Resolved]
  - Dysstasia [Recovering/Resolving]
  - Body height decreased [Unknown]
  - Abdominal pain [Unknown]
  - Pterygium [Unknown]
  - Erythema [Unknown]
  - Peripheral swelling [Unknown]
  - Eye haemorrhage [Unknown]
  - Constipation [Recovering/Resolving]
  - Flatulence [Unknown]
  - Insomnia [Not Recovered/Not Resolved]
  - Pruritus [Unknown]
  - Decreased appetite [Not Recovered/Not Resolved]
  - Fall [Recovered/Resolved]
  - Balance disorder [Not Recovered/Not Resolved]
  - Pain [Unknown]
  - Helicobacter infection [Not Recovered/Not Resolved]
  - Bulimia nervosa [Recovering/Resolving]
  - Depression [Not Recovered/Not Resolved]
  - Breath odour [Recovered/Resolved]
  - Multiple sclerosis relapse [Recovering/Resolving]
  - Syncope [Recovered/Resolved]
  - Muscular weakness [Recovering/Resolving]
  - Pain in extremity [Recovering/Resolving]
  - Fall [Recovering/Resolving]
  - Abdominal discomfort [Unknown]
  - Dyspepsia [Not Recovered/Not Resolved]
  - Paresis [Unknown]
  - Overweight [Recovering/Resolving]
  - Helicobacter infection [Not Recovered/Not Resolved]
  - Fatigue [Not Recovered/Not Resolved]
  - Malaise [Unknown]
  - Renal pain [Recovering/Resolving]
  - Helicobacter infection [Recovered/Resolved]
  - Skin odour abnormal [Recovered/Resolved]
  - Memory impairment [Recovering/Resolving]
  - Weight decreased [Recovering/Resolving]
  - Weight increased [Recovered/Resolved]
  - Dyschezia [Not Recovered/Not Resolved]
  - Musculoskeletal stiffness [Unknown]
  - Aphasia [Unknown]
  - Feeling abnormal [Unknown]
  - Irritability [Unknown]
  - Headache [Unknown]
  - Hypoaesthesia [Unknown]
  - Contusion [Recovered/Resolved]
  - Muscle atrophy [Not Recovered/Not Resolved]
  - Myalgia [Not Recovered/Not Resolved]
  - Aphonia [Unknown]
  - Vomiting [Unknown]
  - Dysarthria [Unknown]
  - Syncope [Unknown]
  - Emotional disorder [Unknown]
  - Paraesthesia [Unknown]
  - Hypokinesia [Unknown]
  - Dyspnoea [Not Recovered/Not Resolved]
  - Obesity [Recovered/Resolved]
  - Tremor [Recovering/Resolving]
  - Muscle spasms [Recovering/Resolving]
  - Bladder pain [Unknown]
  - Dysphonia [Unknown]
  - Eye irritation [Unknown]
  - Limb injury [Unknown]
  - Protein urine present [Not Recovered/Not Resolved]
  - Skin haemorrhage [Unknown]
  - Labyrinthitis [Unknown]
  - Gastrointestinal disorder [Not Recovered/Not Resolved]
  - Cardiac murmur [Not Recovered/Not Resolved]
  - Dysuria [Recovering/Resolving]
  - Respiratory rate increased [Unknown]
  - Bladder disorder [Not Recovered/Not Resolved]
  - Suicidal ideation [Unknown]
  - Gait disturbance [Recovered/Resolved with Sequelae]
  - Speech disorder [Recovered/Resolved]
  - Blood cholesterol increased [Unknown]
  - Hypovitaminosis [Unknown]
  - Panic reaction [Unknown]
  - Amnesia [Not Recovered/Not Resolved]
  - Back pain [Unknown]
  - Speech disorder [Not Recovered/Not Resolved]
  - Sensory loss [Not Recovered/Not Resolved]

NARRATIVE: CASE EVENT DATE: 201307
